FAERS Safety Report 9239973 (Version 1)
Quarter: 2013Q2

REPORT INFORMATION
  Report Type: Spontaneous
  Country: US (occurrence: US)
  Receive Date: 20130418
  Receipt Date: 20130418
  Transmission Date: 20140414
  Serious: No
  Sender: FDA-Public Use
  Company Number: US-ASTRAZENECA-2008UW18603

PATIENT
  Age: 58 Year
  Sex: Male
  Weight: 79.4 kg

DRUGS (7)
  1. CRESTOR [Suspect]
     Indication: HYPERCHOLESTEROLAEMIA
     Route: 048
     Dates: start: 200709
  2. CRESTOR [Suspect]
     Indication: HYPERCHOLESTEROLAEMIA
     Route: 048
     Dates: start: 20071101
  3. CRESTOR [Suspect]
     Indication: HYPERCHOLESTEROLAEMIA
     Route: 048
     Dates: start: 2008, end: 20100802
  4. CRESTOR [Suspect]
     Indication: HYPERCHOLESTEROLAEMIA
     Route: 048
  5. PREVASTATIN [Suspect]
     Route: 065
  6. LISINOPRIL [Concomitant]
     Indication: HYPERTENSION
  7. ASA [Concomitant]

REACTIONS (7)
  - Arthritis [Unknown]
  - Muscle spasms [Unknown]
  - Muscle tightness [Unknown]
  - Rash [Unknown]
  - Myalgia [Not Recovered/Not Resolved]
  - Myalgia [Recovered/Resolved]
  - Drug dose omission [Recovered/Resolved]
